FAERS Safety Report 24704470 (Version 1)
Quarter: 2024Q4

REPORT INFORMATION
  Report Type: Spontaneous
  Country: FR (occurrence: FR)
  Receive Date: 20241206
  Receipt Date: 20241206
  Transmission Date: 20250115
  Serious: Yes (Life-Threatening, Other)
  Sender: BAXTER
  Company Number: None

PATIENT
  Age: 3 Year
  Sex: Male
  Weight: 15 kg

DRUGS (4)
  1. PROPOFOL [Suspect]
     Active Substance: PROPOFOL
     Indication: Circumcision
     Dosage: (DURATION: 1 DAY)
     Route: 042
     Dates: start: 20241115, end: 20241115
  2. ROPIVACAINE HYDROCHLORIDE [Suspect]
     Active Substance: ROPIVACAINE HYDROCHLORIDE
     Indication: Circumcision
     Dosage: (DURATION: 1 DAY)
     Route: 053
     Dates: start: 20241115, end: 20241115
  3. XYLOCAINE [Suspect]
     Active Substance: LIDOCAINE HYDROCHLORIDE
     Indication: Circumcision
     Dosage: (DURATION: 1 DAY)
     Route: 053
     Dates: start: 20241115, end: 20241115
  4. SUFENTANIL [Suspect]
     Active Substance: SUFENTANIL
     Indication: Circumcision
     Dosage: (DURATION: 1 DAY)
     Route: 042
     Dates: start: 20241115, end: 20241115

REACTIONS (1)
  - Cardiac arrest [Recovered/Resolved]

NARRATIVE: CASE EVENT DATE: 20241115
